FAERS Safety Report 6061860-4 (Version None)
Quarter: 2009Q1

REPORT INFORMATION
  Report Type: 
  Country: None (occurrence: None)
  Receive Date: 20090202
  Receipt Date: 20090120
  Transmission Date: 20090719
  Serious: Yes (Hospitalization)
  Sender: FDA-Public Use
  Company Number: PHHY2009FR02434

PATIENT
  Sex: Female

DRUGS (9)
  1. STERDEX (NVO) [Suspect]
     Indication: CATARACT OPERATION
     Dosage: 1 DF, ONCE/SINGLE
     Dates: start: 20081014
  2. TETRACAINE HCL (NVO) [Suspect]
     Indication: CATARACT OPERATION
     Dosage: 1 %, ONCE/SINGLE
     Dates: start: 20081014
  3. TROPICAMIDE (NVO) [Suspect]
     Indication: CATARACT OPERATION
     Dosage: UNK
  4. PILOCARPINE [Suspect]
     Dosage: UNK
  5. EPINEPHRINE [Suspect]
     Dosage: UNK
  6. CARBOCAINE [Suspect]
     Dosage: 2 %
  7. NEOSYNEPHRINE [Suspect]
     Dosage: UNK
  8. OCUFEN [Suspect]
  9. DEXAMETHASONE [Suspect]

REACTIONS (7)
  - BLINDNESS [None]
  - CYCLITIC MEMBRANE [None]
  - ENDOPHTHALMITIS [None]
  - HYPOPYON [None]
  - UVEITIS [None]
  - VISUAL ACUITY REDUCED [None]
  - VITRITIS [None]
